FAERS Safety Report 7517001-7 (Version None)
Quarter: 2011Q2

REPORT INFORMATION
  Report Type: 
  Country: None (occurrence: None)
  Receive Date: 20110601
  Receipt Date: 20110525
  Transmission Date: 20111010
  Serious: Yes (Life-Threatening, Hospitalization, Other)
  Sender: FDA-Public Use
  Company Number: PHHY2011FR15261

PATIENT
  Sex: Female
  Weight: 62 kg

DRUGS (9)
  1. SANDIMMUNE [Suspect]
     Dosage: 50 MG/ML, UNK
     Dates: start: 20110223
  2. OFLOXACIN [Concomitant]
     Dosage: 200 MG,
     Route: 048
  3. ACETAMINOPHEN [Concomitant]
  4. SANDIMMUNE [Suspect]
     Indication: PROCTOCOLITIS
     Dosage: 100 MG, BID
     Dates: start: 20110223
  5. LOVENOX [Concomitant]
     Dosage: 400 IU, DAILY
  6. FLAGYL [Concomitant]
     Dosage: 500 MG,
     Route: 048
  7. SPASFON [Concomitant]
  8. REMICADE [Concomitant]
  9. OLIMEL 7 [Concomitant]
     Dosage: 1.5 L/DAY

REACTIONS (9)
  - MALAISE [None]
  - ANAPHYLACTIC SHOCK [None]
  - CHEST PAIN [None]
  - PAIN [None]
  - CHILLS [None]
  - HOT FLUSH [None]
  - DYSPNOEA [None]
  - RASH [None]
  - DRUG ADMINISTRATION ERROR [None]
